FAERS Safety Report 14329357 (Version 1)
Quarter: 2017Q4

REPORT INFORMATION
  Report Type: Other
  Country: PL (occurrence: PL)
  Receive Date: 20171227
  Receipt Date: 20171227
  Transmission Date: 20180321
  Serious: Yes (Death, Other)
  Sender: FDA-Public Use
  Company Number: PL-GLENMARK PHARMACEUTICALS-2017GMK030245

PATIENT

DRUGS (4)
  1. BENDAMUSTINE [Suspect]
     Active Substance: BENDAMUSTINE
     Indication: PLASMA CELL MYELOMA
     Dosage: 100 MG, UNK
     Route: 041
     Dates: start: 20170228
  2. POMALIDOMIDE [Suspect]
     Active Substance: POMALIDOMIDE
     Dosage: 4 MILLIGRAM
     Route: 048
     Dates: start: 20170310
  3. BENDAMUSTINE [Suspect]
     Active Substance: BENDAMUSTINE
     Dosage: 100 MILLIGRAM
     Route: 041
     Dates: start: 20170301
  4. POMALIDOMIDE [Suspect]
     Active Substance: POMALIDOMIDE
     Indication: PLASMA CELL MYELOMA
     Dosage: 4 MILLIGRAM
     Route: 048
     Dates: start: 20170220, end: 20170303

REACTIONS (6)
  - Anal incontinence [Recovered/Resolved]
  - Thrombocytopenia [Recovering/Resolving]
  - Nervous system disorder [Unknown]
  - Confusional state [Recovered/Resolved]
  - Urinary incontinence [Recovered/Resolved]
  - Death [Fatal]

NARRATIVE: CASE EVENT DATE: 2017
